FAERS Safety Report 15892376 (Version 1)
Quarter: 2019Q1

REPORT INFORMATION
  Report Type: Report from Study
  Country: US (occurrence: US)
  Receive Date: 20190130
  Receipt Date: 20190130
  Transmission Date: 20190417
  Serious: No
  Sender: FDA-Public Use
  Company Number: US-EXELIXIS-CABO-18014789

PATIENT
  Age: 66 Year
  Sex: Female

DRUGS (1)
  1. CABOMETYX [Suspect]
     Active Substance: CABOZANTINIB S-MALATE
     Indication: HEPATIC CANCER
     Dosage: 40 MG, QD (ON AN EMPTY STOMACH)
     Dates: start: 20180616, end: 20180704

REACTIONS (5)
  - Fatigue [Unknown]
  - Rash [Unknown]
  - Off label use [Unknown]
  - Blister [Unknown]
  - Nausea [Unknown]

NARRATIVE: CASE EVENT DATE: 201806
